FAERS Safety Report 25964391 (Version 3)
Quarter: 2025Q4

REPORT INFORMATION
  Report Type: Spontaneous
  Country: US (occurrence: US)
  Receive Date: 20251027
  Receipt Date: 20251205
  Transmission Date: 20260117
  Serious: No
  Sender: GILEAD
  Company Number: US-GILEAD-2025-0733365

PATIENT
  Age: 29 Year
  Sex: Male

DRUGS (2)
  1. YEZTUGO [Suspect]
     Active Substance: LENACAPAVIR SODIUM
     Indication: Prophylaxis against HIV infection
     Dosage: UNK (INJECTION)
     Route: 065
  2. YEZTUGO [Suspect]
     Active Substance: LENACAPAVIR SODIUM
     Indication: Prophylaxis against HIV infection
     Dosage: LOADING DOSE (TABLET)
     Route: 048
     Dates: start: 20251014

REACTIONS (2)
  - Injection site discharge [Unknown]
  - Injection site pain [Recovered/Resolved]
